FAERS Safety Report 25604796 (Version 3)
Quarter: 2025Q4

REPORT INFORMATION
  Report Type: Report from Study
  Country: KR (occurrence: KR)
  Receive Date: 20250725
  Receipt Date: 20251009
  Transmission Date: 20260118
  Serious: Yes (Death)
  Sender: ABBVIE
  Company Number: KR-PFIZER INC-PV202500085926

PATIENT
  Age: 79 Year
  Sex: Female
  Weight: 73 kg

DRUGS (21)
  1. AVIBACTAM SODIUM\CEFTAZIDIME [Suspect]
     Active Substance: AVIBACTAM SODIUM\CEFTAZIDIME
     Indication: Pneumonia
     Dosage: 3 VIAL, 3 TIMES PER DAY (TID)
     Route: 042
     Dates: start: 20250620, end: 20250702
  2. HYDROCORTISONE SODIUM SUCCINATE [Concomitant]
     Active Substance: HYDROCORTISONE SODIUM SUCCINATE
     Indication: Infection
     Dosage: STRENGTH - 50 MG
     Route: 042
     Dates: start: 20250605, end: 20250703
  3. VFEND [Concomitant]
     Active Substance: VORICONAZOLE
     Indication: Infection
     Route: 042
     Dates: start: 20250625, end: 20250630
  4. Remiva [Concomitant]
     Indication: Sedation
     Route: 042
     Dates: start: 20250606, end: 20250703
  5. Teiconin [Concomitant]
     Indication: Infection
     Route: 042
     Dates: start: 20250630, end: 20250701
  6. ORNITHINE ASPARTATE [Concomitant]
     Active Substance: ORNITHINE ASPARTATE
     Indication: Metastases to liver
     Route: 042
     Dates: start: 20250530, end: 20250629
  7. CRESEMBA [Concomitant]
     Active Substance: ISAVUCONAZONIUM SULFATE
     Indication: Infection
     Route: 042
     Dates: start: 20250701, end: 20250703
  8. ZYVOX [Concomitant]
     Active Substance: LINEZOLID
     Indication: Infection
     Route: 042
     Dates: start: 20250620, end: 20250625
  9. PROPOFOL [Concomitant]
     Active Substance: PROPOFOL
     Indication: Sedation
     Dosage: STRENGTH - 2%
     Route: 042
     Dates: start: 20250608, end: 20250625
  10. DILTIAZEM HYDROCHLORIDE [Concomitant]
     Active Substance: DILTIAZEM HYDROCHLORIDE
     Indication: Atrial fibrillation
     Dosage: STRENGTH - 100 MG
     Route: 042
     Dates: start: 20250618, end: 20250703
  11. PROPAFENONE [Concomitant]
     Active Substance: PROPAFENONE
     Indication: Atrial fibrillation
     Dosage: STRENGTH - 225 MG
     Route: 048
     Dates: start: 20250618
  12. Norpin [Concomitant]
     Indication: Prophylaxis
     Route: 042
     Dates: start: 20250620
  13. MIDAZOLAM [Concomitant]
     Active Substance: MIDAZOLAM
     Indication: Sedation
     Route: 042
     Dates: start: 20250627
  14. VANCOMYCIN [Concomitant]
     Active Substance: VANCOMYCIN
     Indication: Infection
     Route: 042
     Dates: start: 20250627
  15. ACETYLCYSTEINE [Concomitant]
     Active Substance: ACETYLCYSTEINE
     Indication: Infection
     Dosage: STRENGTH - 600 MG
     Route: 042
     Dates: start: 20250605
  16. Sedex [Concomitant]
     Indication: Sedation
     Route: 042
     Dates: start: 20250625
  17. LASIX [Concomitant]
     Active Substance: FUROSEMIDE
     Indication: Prophylaxis
     Route: 042
     Dates: start: 20250605, end: 20250629
  18. BISOPROLOL FUMARATE [Concomitant]
     Active Substance: BISOPROLOL FUMARATE
     Indication: Atrial fibrillation
     Dosage: STRENGTH - 2.5 MG
     Route: 048
     Dates: start: 20250618
  19. AMBROXOL [Concomitant]
     Active Substance: AMBROXOL
     Indication: Infection
     Route: 042
     Dates: start: 20250605
  20. TAGAMET [Concomitant]
     Active Substance: CIMETIDINE
     Indication: Gastritis prophylaxis
     Dosage: STRENGTH - 200 MG
     Route: 042
     Dates: start: 20250608, end: 20250703
  21. NEXIUM [Concomitant]
     Active Substance: ESOMEPRAZOLE MAGNESIUM
     Indication: Gastritis prophylaxis
     Route: 042
     Dates: start: 20250608, end: 20250621

REACTIONS (2)
  - Colon cancer [Fatal]
  - Condition aggravated [Fatal]

NARRATIVE: CASE EVENT DATE: 20250704
